FAERS Safety Report 4966816-8 (Version None)
Quarter: 2006Q2

REPORT INFORMATION
  Report Type: 
  Country: None (occurrence: None)
  Receive Date: 20060407
  Receipt Date: 20051031
  Transmission Date: 20061013
  Serious: Yes (Hospitalization)
  Sender: FDA-Public Use
  Company Number: US-MERCK-0511USA00114

PATIENT
  Age: 57 Year
  Sex: Male
  Weight: 98 kg

DRUGS (12)
  1. VIOXX [Suspect]
     Indication: BACK PAIN
     Route: 048
     Dates: start: 20020628, end: 20030204
  2. LIPITOR [Concomitant]
     Indication: BLOOD CHOLESTEROL INCREASED
     Route: 065
     Dates: start: 20010726, end: 20050101
  3. ALLEGRA [Concomitant]
     Route: 065
  4. NEURONTIN [Concomitant]
     Route: 065
  5. LESCOL [Concomitant]
     Route: 065
  6. CEPHALEXIN [Concomitant]
     Route: 065
  7. CODEINE [Concomitant]
     Route: 065
     Dates: start: 19980223, end: 20040721
  8. IBUPROFEN [Concomitant]
     Route: 065
     Dates: start: 19980121, end: 20040608
  9. ZOCOR [Concomitant]
     Indication: BLOOD CHOLESTEROL INCREASED
     Route: 065
     Dates: start: 20010420, end: 20040303
  10. VICODIN [Concomitant]
     Route: 065
     Dates: start: 20001010, end: 20020501
  11. VIOXX [Suspect]
     Route: 048
     Dates: start: 20020628, end: 20030204
  12. SYNTHROID [Concomitant]
     Route: 065

REACTIONS (9)
  - ANGINA UNSTABLE [None]
  - ARTERIOSCLEROSIS CORONARY ARTERY [None]
  - GASTROOESOPHAGEAL REFLUX DISEASE [None]
  - HYPERTENSION [None]
  - INGUINAL HERNIA [None]
  - MYOCARDIAL INFARCTION [None]
  - POST PROCEDURAL HYPOTHYROIDISM [None]
  - RADICULOPATHY [None]
  - VENTRICULAR TACHYCARDIA [None]
